FAERS Safety Report 11257957 (Version 7)
Quarter: 2021Q3

REPORT INFORMATION
  Report Type: Other
  Country: BR (occurrence: BR)
  Receive Date: 20150710
  Receipt Date: 20210823
  Transmission Date: 20211014
  Serious: Yes (Other)
  Sender: FDA-Public Use
  Company Number: BR-ROCHE-1499228

PATIENT
  Age: 36 Year
  Sex: Female
  Weight: 90 kg

DRUGS (25)
  1. METHOTREXATE. [Concomitant]
     Active Substance: METHOTREXATE
  2. LEVOFLOXACIN. [Concomitant]
     Active Substance: LEVOFLOXACIN
     Indication: RHEUMATOID ARTHRITIS
  3. HYDROCHLOROTHIAZIDE. [Concomitant]
     Active Substance: HYDROCHLOROTHIAZIDE
     Indication: HYPERTENSION
  4. PREDNISONE. [Concomitant]
     Active Substance: PREDNISONE
     Indication: RHEUMATOID ARTHRITIS
  5. PURAN [Concomitant]
     Active Substance: LEVOTHYROXINE SODIUM
     Indication: HYPOTHYROIDISM
  6. VENZER [Concomitant]
     Indication: HYPERTENSION
  7. MABTHERA [Suspect]
     Active Substance: RITUXIMAB
     Dosage: 2ND CYCLE
     Route: 042
     Dates: start: 20140315
  8. ENALAPRIL [Concomitant]
     Active Substance: ENALAPRIL
  9. NITRENDIPINE [Concomitant]
     Active Substance: NITRENDIPINE
     Indication: HYPERTENSION
  10. MABTHERA [Suspect]
     Active Substance: RITUXIMAB
     Dosage: 1ST CYCLE
     Route: 042
     Dates: start: 20130908
  11. MABTHERA [Suspect]
     Active Substance: RITUXIMAB
     Dosage: 3ND CYCLE
     Route: 042
     Dates: start: 201412
  12. PREDNISONE. [Concomitant]
     Active Substance: PREDNISONE
  13. MABTHERA [Suspect]
     Active Substance: RITUXIMAB
     Indication: RHEUMATOID ARTHRITIS
     Dosage: 1ST CYCLE
     Route: 042
     Dates: start: 20130825
  14. ESCITALOPRAM [Concomitant]
     Active Substance: ESCITALOPRAM OXALATE
  15. ENALAPRIL [Concomitant]
     Active Substance: ENALAPRIL
     Indication: HYPERTENSION
  16. HYDROCHLOROTHIAZIDE. [Concomitant]
     Active Substance: HYDROCHLOROTHIAZIDE
     Indication: HYPERTENSION
  17. HYDROCHLOROTHIAZIDE. [Concomitant]
     Active Substance: HYDROCHLOROTHIAZIDE
  18. DIPYRONE [Concomitant]
     Active Substance: DIPYRONE
  19. HYDROCHLOROTHIAZIDE. [Concomitant]
     Active Substance: HYDROCHLOROTHIAZIDE
     Indication: HYPERTENSION
  20. ACTEMRA [Suspect]
     Active Substance: TOCILIZUMAB
     Indication: RHEUMATOID ARTHRITIS
     Dosage: MOST RECENT DOSE WAS ON 23/FEB/2021
     Route: 042
     Dates: start: 2016
  21. MABTHERA [Suspect]
     Active Substance: RITUXIMAB
     Dosage: 2ND CYCLE
     Route: 042
     Dates: start: 20140301
  22. ACTEMRA [Suspect]
     Active Substance: TOCILIZUMAB
     Dosage: MOST RECENT DOSE WAS ON 23/FEB/2021 AND MOST RECENT DOSE WAS ON 11/AUG//2021
     Route: 042
     Dates: start: 20160707
  23. ARAVA [Concomitant]
     Active Substance: LEFLUNOMIDE
     Indication: RHEUMATOID ARTHRITIS
  24. PREDNISONE. [Concomitant]
     Active Substance: PREDNISONE
  25. OMEPRAZOLE. [Concomitant]
     Active Substance: OMEPRAZOLE

REACTIONS (24)
  - COVID-19 [Recovered/Resolved]
  - Sepsis [Recovering/Resolving]
  - Weight abnormal [Not Recovered/Not Resolved]
  - Drug ineffective [Unknown]
  - C-reactive protein abnormal [Unknown]
  - Wound haemorrhage [Recovered/Resolved]
  - Dermatitis allergic [Recovered/Resolved]
  - Treatment noncompliance [Unknown]
  - Memory impairment [Recovered/Resolved]
  - Osteoarthritis [Not Recovered/Not Resolved]
  - Arthralgia [Recovering/Resolving]
  - Weight loss poor [Unknown]
  - Pain [Recovering/Resolving]
  - Immunodeficiency [Recovering/Resolving]
  - Hypersensitivity [Unknown]
  - Feeling abnormal [Unknown]
  - Hyperthyroidism [Not Recovered/Not Resolved]
  - Thyroid disorder [Unknown]
  - Therapeutic response decreased [Unknown]
  - Secretion discharge [Unknown]
  - Red blood cell sedimentation rate abnormal [Unknown]
  - Influenza [Recovered/Resolved]
  - Rhinitis [Recovered/Resolved]
  - Hypertension [Not Recovered/Not Resolved]

NARRATIVE: CASE EVENT DATE: 20140113
